FAERS Safety Report 10021016 (Version 1)
Quarter: 2014Q1

REPORT INFORMATION
  Report Type: Report from Study
  Country: US (occurrence: US)
  Receive Date: 20140319
  Receipt Date: 20140319
  Transmission Date: 20141002
  Serious: Yes (Other)
  Sender: FDA-Public Use
  Company Number: US-ASTELLAS-2014US002625

PATIENT
  Age: 70 Year
  Sex: Female

DRUGS (4)
  1. ERLOTINIB TABLET [Suspect]
     Indication: NON-SMALL CELL LUNG CANCER
     Dosage: 50 MG, UID/QD
     Route: 048
     Dates: start: 20140118, end: 20140124
  2. ERLOTINIB TABLET [Suspect]
     Dosage: 100 MG, UID/QD
     Route: 048
     Dates: start: 20140125
  3. LIPITOR [Concomitant]
     Indication: BLOOD CHOLESTEROL
     Dosage: UNK
     Route: 048
  4. LIBRAX                             /00033301/ [Concomitant]
     Indication: GASTROOESOPHAGEAL REFLUX DISEASE
     Dosage: UNK
     Route: 048

REACTIONS (11)
  - Incorrect dose administered [Unknown]
  - Eyelid oedema [Not Recovered/Not Resolved]
  - Face oedema [Not Recovered/Not Resolved]
  - Madarosis [Not Recovered/Not Resolved]
  - Eye pain [Not Recovered/Not Resolved]
  - Rash [Not Recovered/Not Resolved]
  - Dry skin [Not Recovered/Not Resolved]
  - Eyelids pruritus [Not Recovered/Not Resolved]
  - Skin exfoliation [Unknown]
  - Pigmentation disorder [Unknown]
  - Corneal abrasion [Unknown]
